FAERS Safety Report 7392300-0 (Version None)
Quarter: 2011Q2

REPORT INFORMATION
  Report Type: 
  Country: None (occurrence: None)
  Receive Date: 20110404
  Receipt Date: 20110328
  Transmission Date: 20111010
  Serious: Yes (Other)
  Sender: FDA-Public Use
  Company Number: US-PFIZER INC-2010093174

PATIENT
  Sex: Female
  Weight: 104 kg

DRUGS (8)
  1. ZOLOFT [Suspect]
  2. DIOVAN HCT [Concomitant]
     Dosage: UNK
  3. CRESTOR [Concomitant]
     Dosage: 40 MG, UNK
  4. PLAVIX [Concomitant]
     Dosage: 75 MG, UNK
  5. EFFEXOR XR [Suspect]
     Indication: DEPRESSION
     Dosage: 75 MG, DAILY
  6. AMLODIPINE [Concomitant]
     Dosage: UNK
  7. ACETYLSALICYLIC ACID [Concomitant]
  8. NEXIUM [Concomitant]
     Dosage: UNK

REACTIONS (5)
  - PITUITARY TUMOUR [None]
  - WEIGHT INCREASED [None]
  - ABDOMINAL PAIN UPPER [None]
  - RENAL DISORDER [None]
  - MESENTERITIS [None]
